FAERS Safety Report 24528914 (Version 1)
Quarter: 2024Q4

REPORT INFORMATION
  Report Type: Spontaneous
  Country: US (occurrence: US)
  Receive Date: 20241021
  Receipt Date: 20241021
  Transmission Date: 20250115
  Serious: Yes (Other)
  Sender: MERCK
  Company Number: US-009507513-2410USA005674

PATIENT
  Sex: Female

DRUGS (5)
  1. JANUMET [Suspect]
     Active Substance: METFORMIN HYDROCHLORIDE\SITAGLIPTIN PHOSPHATE
     Dosage: UNK
     Route: 048
  2. ACTOS [Suspect]
     Active Substance: PIOGLITAZONE HYDROCHLORIDE
     Dosage: UNK
  3. OZEMPIC [Suspect]
     Active Substance: SEMAGLUTIDE
     Dosage: UNK
  4. RYBELSUS [Suspect]
     Active Substance: SEMAGLUTIDE
     Dosage: UNK
  5. BRENZAVVY [Concomitant]
     Active Substance: BEXAGLIFLOZIN
     Dosage: UNK

REACTIONS (13)
  - Impaired gastric emptying [Unknown]
  - Myectomy [Unknown]
  - Weight loss poor [Unknown]
  - Weight gain poor [Unknown]
  - Lymphoedema [Unknown]
  - Renal pain [Recovered/Resolved]
  - Hernia [Unknown]
  - Vomiting projectile [Unknown]
  - Anaemia [Unknown]
  - Abdominal distension [Unknown]
  - Thirst [Unknown]
  - Gastrooesophageal reflux disease [Unknown]
  - Weight decreased [Unknown]

NARRATIVE: CASE EVENT DATE: 20080101
